FAERS Safety Report 4863140-9 (Version None)
Quarter: 2005Q4

REPORT INFORMATION
  Report Type: 
  Country: None (occurrence: None)
  Receive Date: 20051201
  Receipt Date: 20050105
  Transmission Date: 20060501
  Serious: Yes (Hospitalization)
  Sender: FDA-Public Use
  Company Number: 200500014

PATIENT
  Age: 64 Year
  Sex: Female
  Weight: 95 kg

DRUGS (5)
  1. ALPHAGAN [Suspect]
     Indication: GLAUCOMA
     Dosage: 1 DROP BID EYE
     Dates: start: 20041211, end: 20050105
  2. CAPTOPRIL 25 [Concomitant]
  3. BISOMERCK [Concomitant]
  4. BETA-ACETYLDIGOXIN [Concomitant]
  5. ASPIRIN [Concomitant]

REACTIONS (2)
  - ATRIAL FIBRILLATION [None]
  - TACHYCARDIA [None]
